FAERS Safety Report 8413937-3 (Version None)
Quarter: 2012Q2

REPORT INFORMATION
  Report Type: 
  Country: None (occurrence: None)
  Receive Date: 20120605
  Receipt Date: 20120530
  Transmission Date: 20120825
  Serious: No
  Sender: FDA-Public Use
  Company Number: US-ASTRAZENECA-2012SE36521

PATIENT
  Age: 67 Year
  Sex: Female
  Weight: 69.9 kg

DRUGS (2)
  1. NEXIUM [Suspect]
     Indication: GASTROOESOPHAGEAL REFLUX DISEASE
     Route: 048
  2. CRESTOR [Suspect]
     Indication: BLOOD CHOLESTEROL INCREASED
     Route: 048

REACTIONS (6)
  - COUGH [None]
  - UPPER-AIRWAY COUGH SYNDROME [None]
  - INCREASED UPPER AIRWAY SECRETION [None]
  - SINUS HEADACHE [None]
  - RHINITIS [None]
  - CHOKING [None]
